FAERS Safety Report 9731496 (Version 1)
Quarter: 2013Q4

REPORT INFORMATION
  Report Type: Spontaneous
  Country: DE (occurrence: DE)
  Receive Date: 20131205
  Receipt Date: 20131205
  Transmission Date: 20140711
  Serious: Yes (Other)
  Sender: FDA-Public Use
  Company Number: DE-ROCHE-1314149

PATIENT
  Age: 29 Year
  Sex: Male

DRUGS (1)
  1. ACTILYSE [Suspect]
     Indication: BASILAR ARTERY OCCLUSION
     Route: 042

REACTIONS (3)
  - Basilar artery occlusion [Recovered/Resolved]
  - Brain oedema [Recovered/Resolved]
  - Artery dissection [Recovered/Resolved]
